FAERS Safety Report 6022264-3 (Version None)
Quarter: 2008Q4

REPORT INFORMATION
  Report Type: 
  Country: None (occurrence: None)
  Receive Date: 20081230
  Receipt Date: 20081218
  Transmission Date: 20090506
  Serious: Yes (Other)
  Sender: FDA-Public Use
  Company Number: US-RANBAXY-2008US-17645

PATIENT

DRUGS (2)
  1. ISOTRETINOIN [Suspect]
     Indication: DRUG USE FOR UNKNOWN INDICATION
     Dosage: 20 MG, TID
     Route: 048
     Dates: start: 20080714, end: 20080729
  2. AMNESTEEM [Suspect]
     Indication: DRUG USE FOR UNKNOWN INDICATION
     Dosage: UNK
     Dates: start: 20080610

REACTIONS (1)
  - PREGNANCY [None]
